FAERS Safety Report 10349507 (Version 1)
Quarter: 2014Q3

REPORT INFORMATION
  Report Type: Spontaneous
  Country: US (occurrence: US)
  Receive Date: 20140730
  Receipt Date: 20140730
  Transmission Date: 20150326
  Serious: Yes (Death)
  Sender: FDA-Public Use
  Company Number: US-ROCHE-1439980

PATIENT
  Age: 64 Year
  Sex: Male

DRUGS (1)
  1. XELODA [Suspect]
     Active Substance: CAPECITABINE
     Indication: COLORECTAL CANCER
     Dosage: GIVEN WITH NO REST PERIODS
     Route: 048
     Dates: start: 20130805

REACTIONS (10)
  - Dehydration [Fatal]
  - Renal failure acute [Fatal]
  - Pain [Unknown]
  - Skin discolouration [Not Recovered/Not Resolved]
  - Burns third degree [Fatal]
  - Septic shock [Fatal]
  - Erythema [Not Recovered/Not Resolved]
  - Heart rate increased [Fatal]
  - Hallucination [Fatal]
  - White blood cell count decreased [Fatal]

NARRATIVE: CASE EVENT DATE: 20130819
